FAERS Safety Report 6750647-2 (Version None)
Quarter: 2010Q2

REPORT INFORMATION
  Report Type: 
  Country: None (occurrence: None)
  Receive Date: 20100602
  Receipt Date: 20100525
  Transmission Date: 20101027
  Serious: Yes (Hospitalization, Other)
  Sender: FDA-Public Use
  Company Number: US-BIOGENIDEC-2010BI013966

PATIENT
  Sex: Female

DRUGS (2)
  1. TYSABRI [Suspect]
     Indication: MULTIPLE SCLEROSIS
     Route: 042
     Dates: start: 20100402
  2. NEURONTIN [Concomitant]

REACTIONS (4)
  - ANAEMIA [None]
  - ENDOMETRIOSIS [None]
  - GASTRITIS [None]
  - GASTROINTESTINAL DISORDER POSTOPERATIVE [None]
